FAERS Safety Report 6646520-0 (Version None)
Quarter: 2010Q1

REPORT INFORMATION
  Report Type: 
  Country: None (occurrence: None)
  Receive Date: 20100322
  Receipt Date: 20100322
  Transmission Date: 20100710
  Serious: No
  Sender: FDA-Public Use
  Company Number: None

PATIENT
  Sex: Female
  Weight: 56.246 kg

DRUGS (1)
  1. PARAGARD T 380A [Suspect]
     Indication: CONTRACEPTION
     Dates: start: 20080318, end: 20091216

REACTIONS (1)
  - MEDICAL DEVICE COMPLICATION [None]
